FAERS Safety Report 8419975-9 (Version None)
Quarter: 2012Q2

REPORT INFORMATION
  Report Type: 
  Country: None (occurrence: None)
  Receive Date: 20120607
  Receipt Date: 20120601
  Transmission Date: 20120825
  Serious: Yes (Hospitalization, Other)
  Sender: FDA-Public Use
  Company Number: US-TEVA-341112USA

PATIENT
  Age: 63 Year
  Sex: Male

DRUGS (7)
  1. LEVOTHYROXINE SODIUM [Concomitant]
     Indication: HYPOTHYROIDISM
     Dosage: 100 MICROGRAM;
     Route: 048
  2. ROFLUMILAST [Suspect]
     Indication: CHRONIC OBSTRUCTIVE PULMONARY DISEASE
     Dosage: 500 MICROGRAM;
     Route: 048
     Dates: start: 20120401, end: 20120516
  3. FUROSEMIDE [Concomitant]
     Dosage: 80 MILLIGRAM;
     Route: 048
  4. TIOTROPIUM BROMIDE [Concomitant]
     Indication: CHRONIC OBSTRUCTIVE PULMONARY DISEASE
     Dosage: 18 MICROGRAM;
     Route: 048
  5. METOLAZONE [Suspect]
     Dates: start: 20120401
  6. ALLOPURINOL [Concomitant]
     Indication: GOUT
     Dosage: 300 MILLIGRAM;
     Route: 048
  7. METFORMIN HCL [Concomitant]
     Indication: DIABETES MELLITUS
     Dosage: 500 MICROGRAM;
     Route: 048
     Dates: end: 20120501

REACTIONS (8)
  - NAUSEA [None]
  - FATIGUE [None]
  - CARDIOMYOPATHY [None]
  - DECREASED APPETITE [None]
  - HEPATIC ENZYME INCREASED [None]
  - ATRIAL FIBRILLATION [None]
  - RENAL FAILURE [None]
  - INSOMNIA [None]
